FAERS Safety Report 23794005 (Version 1)
Quarter: 2024Q2

REPORT INFORMATION
  Report Type: Spontaneous
  Country: FR (occurrence: FR)
  Receive Date: 20240429
  Receipt Date: 20240429
  Transmission Date: 20240716
  Serious: Yes (Life-Threatening)
  Sender: FDA-Public Use
  Company Number: None

PATIENT
  Age: 15 Year
  Sex: Male

DRUGS (1)
  1. RINVOQ [Suspect]
     Active Substance: UPADACITINIB
     Indication: Dermatitis atopic
     Dosage: 15 MG / JOUR FORM STRENGTH WAS 15 MILLIGRAMS
     Route: 048
     Dates: start: 20240208, end: 20240320

REACTIONS (1)
  - Bartonellosis [Not Recovered/Not Resolved]

NARRATIVE: CASE EVENT DATE: 20240401
